FAERS Safety Report 9881863 (Version 3)
Quarter: 2014Q3

REPORT INFORMATION
  Report Type: Spontaneous
  Country: US (occurrence: US)
  Receive Date: 20140207
  Receipt Date: 20140915
  Transmission Date: 20150326
  Serious: Yes (Hospitalization)
  Sender: FDA-Public Use
  Company Number: US-009507513-1402USA002744

PATIENT
  Sex: Female
  Weight: 105.21 kg

DRUGS (1)
  1. NUVARING [Suspect]
     Active Substance: ETHINYL ESTRADIOL\ETONOGESTREL
     Indication: CONTRACEPTION
     Dosage: TO INSERT ON 5TH DAY OF CYCLE; REMOVE ON 4TH WEEK
     Route: 067
     Dates: start: 20090621

REACTIONS (5)
  - Deep vein thrombosis [Unknown]
  - Deep vein thrombosis [Unknown]
  - Vision blurred [Unknown]
  - Anaemia [Unknown]
  - Hypertension [Unknown]

NARRATIVE: CASE EVENT DATE: 20100913
